FAERS Safety Report 5621697-4 (Version None)
Quarter: 2008Q1

REPORT INFORMATION
  Report Type: 
  Country: None (occurrence: None)
  Receive Date: 20080206
  Receipt Date: 20080129
  Transmission Date: 20080703
  Serious: Yes (Other)
  Sender: FDA-Public Use
  Company Number: 2008BI002561

PATIENT
  Age: 47 Year
  Sex: Male

DRUGS (1)
  1. TYSABRI [Suspect]
     Indication: MULTIPLE SCLEROSIS
     Dosage: 300 MG;QM;IV
     Route: 042
     Dates: start: 20050216, end: 20070921

REACTIONS (5)
  - CONDITION AGGRAVATED [None]
  - FALL [None]
  - HEAD INJURY [None]
  - HEART RATE DECREASED [None]
  - MULTIPLE SCLEROSIS [None]
